FAERS Safety Report 17802772 (Version 1)
Quarter: 2020Q2

REPORT INFORMATION
  Report Type: Report from Study
  Country: ES (occurrence: ES)
  Receive Date: 20200519
  Receipt Date: 20200519
  Transmission Date: 20200714
  Serious: Yes (Hospitalization)
  Sender: FDA-Public Use
  Company Number: ES-TEVA-2020-ES-1235789

PATIENT
  Age: 75 Year
  Sex: Male

DRUGS (4)
  1. VINORELBINA (2583A) [Suspect]
     Active Substance: VINORELBINE TARTRATE
     Indication: LUNG ADENOCARCINOMA
     Dosage: 43.8 MG
     Route: 042
     Dates: start: 20181015, end: 20191015
  2. PREGABALINA (3897A) [Concomitant]
     Active Substance: PREGABALIN
     Indication: PAIN
     Dosage: 50 MG
     Route: 048
     Dates: start: 20180717, end: 20191016
  3. METAMIZOL (111A) [Concomitant]
     Active Substance: METAMIZOL SODIUM
     Indication: PAIN
     Dosage: 575 MG
     Route: 048
     Dates: start: 20121026, end: 20191016
  4. CARBOPLATINO (2323A) [Suspect]
     Active Substance: CARBOPLATIN
     Indication: LUNG ADENOCARCINOMA
     Dosage: 420 MG
     Route: 042
     Dates: start: 20191015, end: 20191015

REACTIONS (2)
  - Colitis [Recovered/Resolved]
  - Lower gastrointestinal haemorrhage [Recovered/Resolved]

NARRATIVE: CASE EVENT DATE: 20191016
